FAERS Safety Report 15409552 (Version 3)
Quarter: 2018Q4

REPORT INFORMATION
  Report Type: Report from Study
  Country: US (occurrence: US)
  Receive Date: 20180920
  Receipt Date: 20181106
  Transmission Date: 20190204
  Serious: Yes (Hospitalization, Other)
  Sender: FDA-Public Use
  Company Number: US-BAUSCH-BL-2018-025180

PATIENT
  Age: 66 Year
  Sex: Female
  Weight: 62.2 kg

DRUGS (8)
  1. XIFAXAN [Suspect]
     Active Substance: RIFAXIMIN
     Indication: HEPATIC CIRRHOSIS
     Dosage: COUPLE OF YEARS AGO
     Route: 048
     Dates: start: 2016
  2. POTASSIUM [Concomitant]
     Active Substance: POTASSIUM
     Indication: PRODUCT USED FOR UNKNOWN INDICATION
  3. LACTULOSE. [Suspect]
     Active Substance: LACTULOSE
     Indication: HYPERAMMONAEMIA
     Dosage: 15 ML IN THE MORNING AND 15 ML IN THE EVENING DAILY
     Route: 065
     Dates: start: 2015
  4. METOPROLOL TARTRATE. [Concomitant]
     Active Substance: METOPROLOL TARTRATE
     Indication: PRODUCT USED FOR UNKNOWN INDICATION
  5. PANTOPRAZOLE [Concomitant]
     Active Substance: PANTOPRAZOLE
     Indication: PRODUCT USED FOR UNKNOWN INDICATION
  6. ATORVASTATIN [Concomitant]
     Active Substance: ATORVASTATIN
     Indication: PRODUCT USED FOR UNKNOWN INDICATION
  7. FUROSEMIDE. [Concomitant]
     Active Substance: FUROSEMIDE
     Indication: PRODUCT USED FOR UNKNOWN INDICATION
  8. LOSARTAN. [Concomitant]
     Active Substance: LOSARTAN
     Indication: HYPERTENSION

REACTIONS (7)
  - Upper limb fracture [Recovered/Resolved]
  - Ammonia increased [Recovered/Resolved]
  - Coma [Recovered/Resolved]
  - Unevaluable event [Recovered/Resolved]
  - Abdominal pain upper [Recovered/Resolved]
  - Hypoglycaemia [Recovered/Resolved]
  - Contusion [Recovered/Resolved]

NARRATIVE: CASE EVENT DATE: 2018
